FAERS Safety Report 15565001 (Version 1)
Quarter: 2018Q4

REPORT INFORMATION
  Report Type: Spontaneous
  Country: JP (occurrence: JP)
  Receive Date: 20181030
  Receipt Date: 20181030
  Transmission Date: 20190205
  Serious: Yes (Hospitalization, Other)
  Sender: FDA-Public Use
  Company Number: JP-ROCHE-2170812

PATIENT
  Age: 64 Year
  Sex: Male
  Weight: 84 kg

DRUGS (19)
  1. ACTEMRA [Suspect]
     Active Substance: TOCILIZUMAB
     Indication: TEMPORAL ARTERITIS
     Route: 058
     Dates: start: 201804
  2. DAIPHEN [Concomitant]
     Active Substance: SULFAMETHOXAZOLE\TRIMETHOPRIM
     Dosage: DOSAGE IS UNCERTAIN.
     Route: 065
     Dates: start: 20180308
  3. MAGMITT [Concomitant]
     Active Substance: MAGNESIUM OXIDE
     Dosage: DOSAGE IS UNCERTAIN.
     Route: 065
     Dates: start: 20180319, end: 20180730
  4. AUGMENTIN [Concomitant]
     Active Substance: AMOXICILLIN\CLAVULANATE POTASSIUM
     Dosage: DOSAGE IS UNCERTAIN.
     Route: 065
     Dates: start: 20180626, end: 20180630
  5. PL [Concomitant]
     Active Substance: ACETAMINOPHEN\CAFFEINE\PROMETHAZINE\SALICYLAMIDE
     Dosage: DOSAGE IS UNCERTAIN.
     Route: 048
     Dates: start: 20180626, end: 20180702
  6. ACTEMRA [Suspect]
     Active Substance: TOCILIZUMAB
     Route: 058
     Dates: start: 20180315, end: 20180724
  7. VFEND [Suspect]
     Active Substance: VORICONAZOLE
     Indication: HEPATIC ENZYME INCREASED
     Dosage: DOSAGE IS UNCERTAIN.
     Route: 048
     Dates: start: 20180811
  8. ALFACALCIDOL [Concomitant]
     Active Substance: ALFACALCIDOL
     Dosage: DOSAGE IS UNCERTAIN.
     Route: 065
     Dates: start: 20180308
  9. BAYASPIRIN [Concomitant]
     Active Substance: ASPIRIN
     Dosage: DOSAGE IS UNCERTAIN.
     Route: 065
     Dates: start: 20180308
  10. REBAMIPIDE [Concomitant]
     Active Substance: REBAMIPIDE
     Dosage: DOSAGE IS UNCERTAIN.
     Route: 065
     Dates: start: 20180626
  11. AMITIZA [Concomitant]
     Active Substance: LUBIPROSTONE
     Dosage: DOSAGE IS UNCERTAIN.
     Route: 065
     Dates: start: 20180306, end: 20180730
  12. L-CARBOCISTEINE [Concomitant]
     Active Substance: CARBOCYSTEINE
     Dosage: DOSAGE IS UNCERTAIN.
     Route: 065
     Dates: start: 20180626, end: 20180702
  13. PREDNISOLONE. [Suspect]
     Active Substance: PREDNISOLONE
     Indication: PRODUCT USED FOR UNKNOWN INDICATION
     Dosage: GRADUAL DECREASE FROM 30MG (MORNING) AND 15MG (DAYTIME)
     Route: 048
     Dates: start: 20180308
  14. URSODEOXYCHOLIC ACID [Concomitant]
     Active Substance: URSODIOL
     Dosage: DOSAGE IS UNCERTAIN.
     Route: 065
     Dates: start: 20180626
  15. FEBURIC [Concomitant]
     Active Substance: FEBUXOSTAT
     Dosage: DOSAGE IS UNCERTAIN.
     Route: 065
     Dates: start: 20180306, end: 20180814
  16. ALENDRONATE SODIUM HYDRATE [Concomitant]
     Active Substance: ALENDRONATE SODIUM
     Dosage: DOSAGE IS UNCERTAIN.
     Route: 065
     Dates: start: 20180311
  17. VFEND [Suspect]
     Active Substance: VORICONAZOLE
     Indication: HEPATIC ENZYME INCREASED
     Route: 048
  18. METFORMIN HYDROCHLORIDE. [Concomitant]
     Active Substance: METFORMIN HYDROCHLORIDE
     Dosage: DOSAGE IS UNCERTAIN.
     Route: 065
     Dates: start: 20180308
  19. NIFEDIPINE. [Concomitant]
     Active Substance: NIFEDIPINE
     Dosage: DOSAGE IS UNCERTAIN.
     Route: 065
     Dates: start: 20180306

REACTIONS (3)
  - Pneumonia cryptococcal [Recovering/Resolving]
  - Hepatic enzyme increased [Unknown]
  - Renal impairment [Unknown]

NARRATIVE: CASE EVENT DATE: 20180626
